FAERS Safety Report 10150242 (Version 1)
Quarter: 2014Q2

REPORT INFORMATION
  Report Type: Spontaneous
  Country: BR (occurrence: BR)
  Receive Date: 20140502
  Receipt Date: 20140502
  Transmission Date: 20141212
  Serious: Yes (Other)
  Sender: FDA-Public Use
  Company Number: BR-JNJFOC-20140419706

PATIENT
  Age: 56 Year
  Sex: Female
  Weight: 82 kg

DRUGS (4)
  1. REMICADE [Suspect]
     Indication: RHEUMATOID ARTHRITIS
     Route: 042
     Dates: start: 201401
  2. MAREVAN [Concomitant]
     Route: 065
  3. ATENOLOL [Concomitant]
     Indication: BLOOD PRESSURE
     Route: 065
  4. FENOFIBRATE [Concomitant]
     Route: 065

REACTIONS (2)
  - Animal bite [Recovered/Resolved]
  - Thrombosis [Unknown]
